FAERS Safety Report 5810869-1 (Version None)
Quarter: 2008Q3

REPORT INFORMATION
  Report Type: 
  Country: None (occurrence: None)
  Receive Date: 20080710
  Receipt Date: 20080630
  Transmission Date: 20090109
  Serious: Yes (Other)
  Sender: FDA-Public Use
  Company Number: 2008SP13255

PATIENT
  Age: 68 Year
  Sex: Male
  Weight: 57.6068 kg

DRUGS (6)
  1. PEG-INTRON (PEGINTERFERON ALFA-2B) [Suspect]
     Indication: HEPATITIS C
     Dosage: QW;SC
     Route: 058
     Dates: start: 20070720, end: 20080509
  2. TARIBAVIRIN [Suspect]
     Indication: HEPATITIS C
     Dosage: 1400 MG;QD;PO
     Route: 048
     Dates: start: 20070720, end: 20080514
  3. MAGACE [Concomitant]
  4. ALBUTEROL [Concomitant]
  5. MAALOX [Concomitant]
  6. ATARAX [Concomitant]

REACTIONS (7)
  - ANOREXIA [None]
  - GASTRIC CANCER [None]
  - GASTRIC ULCER [None]
  - HAEMATEMESIS [None]
  - OESOPHAGEAL SQUAMOUS CELL CARCINOMA [None]
  - THROMBOCYTOPENIA [None]
  - WEIGHT DECREASED [None]
